FAERS Safety Report 23201842 (Version 1)
Quarter: 2023Q4

REPORT INFORMATION
  Report Type: Spontaneous
  Country: TW (occurrence: TW)
  Receive Date: 20231120
  Receipt Date: 20231120
  Transmission Date: 20240110
  Serious: Yes (Other)
  Sender: FDA-Public Use
  Company Number: TW-002147023-NVSC2023TW245538

PATIENT

DRUGS (1)
  1. KYMRIAH [Suspect]
     Active Substance: TISAGENLECLEUCEL
     Indication: Product used for unknown indication
     Dosage: UNK, ONCE/SINGLE
     Route: 042
     Dates: start: 20231114

REACTIONS (7)
  - Cytokine release syndrome [Unknown]
  - Pyrexia [Recovering/Resolving]
  - Wheezing [Unknown]
  - Cough [Unknown]
  - Tremor [Unknown]
  - Chills [Unknown]
  - Oxygen saturation decreased [Unknown]
